FAERS Safety Report 19911454 (Version 1)
Quarter: 2021Q4

REPORT INFORMATION
  Report Type: Spontaneous
  Country: US (occurrence: US)
  Receive Date: 20211004
  Receipt Date: 20211004
  Transmission Date: 20220303
  Serious: No
  Sender: FDA-Public Use
  Company Number: US-TEVA-2021-US-1960349

PATIENT

DRUGS (1)
  1. METHYLPHENIDATE HYDROCHLORIDE [Suspect]
     Active Substance: METHYLPHENIDATE HYDROCHLORIDE
     Route: 065
     Dates: start: 2011

REACTIONS (6)
  - Anxiety [Unknown]
  - Panic disorder [Unknown]
  - Drug ineffective [Unknown]
  - Feeding disorder [Unknown]
  - Decreased appetite [Unknown]
  - Adverse drug reaction [Unknown]
